FAERS Safety Report 19604368 (Version 1)
Quarter: 2021Q3

REPORT INFORMATION
  Report Type: Spontaneous
  Country: US (occurrence: US)
  Receive Date: 20210724
  Receipt Date: 20210724
  Transmission Date: 20211014
  Serious: No
  Sender: FDA-Public Use
  Company Number: US-TAKEDA-2021TUS044570

PATIENT

DRUGS (2)
  1. MOTEGRITY [Suspect]
     Active Substance: PRUCALOPRIDE SUCCINATE
     Indication: PRODUCT USED FOR UNKNOWN INDICATION
     Route: 065
  2. LACTULOSE AL [Concomitant]
     Active Substance: LACTULOSE

REACTIONS (4)
  - Headache [Unknown]
  - Adverse drug reaction [Unknown]
  - Drug intolerance [Unknown]
  - Drug ineffective [Unknown]
